FAERS Safety Report 6072684-6 (Version None)
Quarter: 2009Q1

REPORT INFORMATION
  Report Type: 
  Country: None (occurrence: None)
  Receive Date: 20090210
  Receipt Date: 20090210
  Transmission Date: 20090719
  Serious: Yes (Other)
  Sender: FDA-Public Use
  Company Number: US-PFIZER INC-2009151578

PATIENT
  Sex: Female
  Weight: 73.469 kg

DRUGS (14)
  1. LYRICA [Suspect]
     Indication: PAIN
     Dosage: 75 MG, AS NEEDED
     Route: 048
     Dates: start: 20080801
  2. LYRICA [Suspect]
     Indication: HERPES ZOSTER
  3. HUMIRA [Suspect]
     Indication: CROHN'S DISEASE
     Dosage: 160 MG, 1X/DAY
     Route: 058
  4. HUMIRA [Suspect]
     Dosage: 80 MG, 1X/DAY
     Route: 058
     Dates: start: 20080501, end: 20080724
  5. HUMIRA [Suspect]
     Dosage: 40MG, 1 IN 2 WK
     Dates: start: 20080828
  6. LANTUS [Concomitant]
     Indication: TYPE 2 DIABETES MELLITUS
     Dosage: 25 UNK, 2X/DAY
  7. INSULIN ASPART [Concomitant]
     Indication: TYPE 2 DIABETES MELLITUS
     Dosage: SLIDING SCALE
  8. METFORMIN [Concomitant]
     Indication: TYPE 2 DIABETES MELLITUS
     Dosage: 500 MG, 2X/DAY
     Route: 048
  9. PREDNISONE [Concomitant]
     Indication: CROHN'S DISEASE
     Dosage: 10 MG, 1X/DAY
     Route: 048
     Dates: start: 20080601
  10. FUROSEMIDE [Concomitant]
     Dosage: 40 MG, 1X/DAY
     Route: 048
  11. POTASSIUM [Concomitant]
     Dosage: 2 TABS EVERY NIGHT
     Route: 048
  12. SERTRALINE [Concomitant]
     Indication: DEPRESSION
     Dosage: 2 TABS EVERY NIGHT
     Route: 048
  13. BUSPIRONE [Concomitant]
     Dosage: 30 MG, 2X/DAY
     Route: 048
  14. ESZOPICLONE [Concomitant]
     Dosage: EVERY NIGHT
     Route: 048

REACTIONS (2)
  - ANIMAL BITE [None]
  - LOCALISED INFECTION [None]
